FAERS Safety Report 9785446 (Version 2)
Quarter: 2014Q1

REPORT INFORMATION
  Report Type: Spontaneous
  Country: US (occurrence: US)
  Receive Date: 20131227
  Receipt Date: 20140109
  Transmission Date: 20141002
  Serious: No
  Sender: FDA-Public Use
  Company Number: US-BAYER-2013-155760

PATIENT
  Age: 67 Year
  Sex: Female

DRUGS (1)
  1. FINACEA [Suspect]
     Indication: ROSACEA

REACTIONS (3)
  - Oral discomfort [Not Recovered/Not Resolved]
  - Paraesthesia oral [None]
  - Drug administered at inappropriate site [None]
